FAERS Safety Report 6050798-4 (Version None)
Quarter: 2009Q1

REPORT INFORMATION
  Report Type: 
  Country: None (occurrence: None)
  Receive Date: 20090126
  Receipt Date: 20080212
  Transmission Date: 20090719
  Serious: No
  Sender: FDA-Public Use
  Company Number: US-ABBOTT-08P-163-0438078-00

PATIENT
  Sex: Female
  Weight: 68.1 kg

DRUGS (10)
  1. TRICOR [Suspect]
     Indication: BLOOD CHOLESTEROL INCREASED
     Route: 048
     Dates: end: 20080201
  2. TRICOR [Suspect]
     Indication: BLOOD TRIGLYCERIDES
  3. ATORVASTATIN CALCIUM [Suspect]
     Indication: BLOOD CHOLESTEROL INCREASED
     Route: 048
     Dates: end: 20080201
  4. ZOLPIDEM TARTRATE [Concomitant]
     Indication: INSOMNIA
  5. METFORMIN HCL [Concomitant]
     Indication: DIABETES MELLITUS
  6. GLIBENCLAMIDE [Concomitant]
     Indication: DIABETES MELLITUS
  7. METOPROLOL TARTRATE [Concomitant]
     Indication: HYPERTENSION
  8. AMLODIPINE [Concomitant]
     Indication: HYPERTENSION
  9. TICLOPIDINE HYDROCHLORIDE [Concomitant]
     Indication: THROMBOSIS PROPHYLAXIS
  10. ACETYLSALICYLIC ACID SRT [Concomitant]
     Indication: THROMBOSIS PROPHYLAXIS

REACTIONS (5)
  - ANOREXIA [None]
  - DIZZINESS [None]
  - MUSCLE SPASMS [None]
  - MUSCULAR WEAKNESS [None]
  - PYREXIA [None]
